FAERS Safety Report 6582946-1 (Version None)
Quarter: 2010Q1

REPORT INFORMATION
  Report Type: 
  Country: None (occurrence: None)
  Receive Date: 20100216
  Receipt Date: 20100210
  Transmission Date: 20100710
  Serious: Yes (Hospitalization)
  Sender: FDA-Public Use
  Company Number: DE-BRISTOL-MYERS SQUIBB COMPANY-14973374

PATIENT
  Age: 68 Year
  Sex: Female

DRUGS (2)
  1. PACLITAXEL [Suspect]
     Indication: BREAST CANCER
     Dosage: INTERRUPTED ON 01DEC09
     Route: 042
     Dates: start: 20091118, end: 20091202
  2. LAPATINIB [Suspect]
     Indication: BREAST CANCER
     Dosage: INTERRUPTED ON 04DEC09
     Route: 048
     Dates: start: 20091118, end: 20091205

REACTIONS (2)
  - DIARRHOEA [None]
  - WEIGHT DECREASED [None]
